FAERS Safety Report 4708541-4 (Version None)
Quarter: 2005Q3

REPORT INFORMATION
  Report Type: 
  Country: None (occurrence: None)
  Receive Date: 20050707
  Receipt Date: 20050629
  Transmission Date: 20060218
  Serious: Yes (Hospitalization)
  Sender: FDA-Public Use
  Company Number: JP-GLAXOSMITHKLINE-B0386457A

PATIENT
  Age: 62 Year
  Sex: Male

DRUGS (6)
  1. EPIVIR [Suspect]
     Indication: HIV INFECTION
     Dosage: 150MG TWICE PER DAY
     Route: 048
     Dates: start: 20021028, end: 20030304
  2. RETROVIR [Suspect]
     Indication: HIV INFECTION
     Dosage: 600MG PER DAY
     Route: 048
     Dates: start: 20021028, end: 20030304
  3. EFAVIRENZ [Suspect]
     Indication: HIV INFECTION
     Dosage: 600MG PER DAY
     Route: 048
     Dates: start: 20021028, end: 20030304
  4. GANCICLOVIR [Concomitant]
     Dosage: 1000MG THREE TIMES PER DAY
     Route: 048
  5. CLARITHROMYCIN [Concomitant]
     Indication: MYCOBACTERIUM AVIUM COMPLEX INFECTION
     Dosage: 400MG TWICE PER DAY
     Route: 048
  6. COTRIM [Concomitant]
     Route: 048
     Dates: start: 19990525, end: 20050627

REACTIONS (9)
  - DIARRHOEA [None]
  - DYSPNOEA [None]
  - HYPERTHYROIDISM [None]
  - IMMUNE RECONSTITUTION SYNDROME [None]
  - LACTIC ACIDOSIS [None]
  - MALAISE [None]
  - NAUSEA [None]
  - TREMOR [None]
  - VOMITING [None]
